FAERS Safety Report 15089594 (Version 1)
Quarter: 2018Q2

REPORT INFORMATION
  Report Type: Spontaneous
  Country: US (occurrence: US)
  Receive Date: 20180608
  Receipt Date: 20180608
  Transmission Date: 20180711
  Serious: Yes (Hospitalization)
  Sender: FDA-Public Use
  Company Number: None

PATIENT
  Age: 61 Year
  Sex: Female

DRUGS (2)
  1. OCREVUS [Suspect]
     Active Substance: OCRELIZUMAB
     Indication: MULTIPLE SCLEROSIS
     Dosage: ?   600 MG/ML EVERY 6 MONTHS; INTRACAVERNOUS
     Route: 017
     Dates: start: 20180417
  2. AMPYRA [Concomitant]
     Active Substance: DALFAMPRIDINE

REACTIONS (7)
  - Asthenia [None]
  - Muscle spasticity [None]
  - Loss of personal independence in daily activities [None]
  - Pain [None]
  - Weight bearing difficulty [None]
  - Ankle fracture [None]
  - Fatigue [None]
